FAERS Safety Report 23533244 (Version 2)
Quarter: 2024Q3

REPORT INFORMATION
  Report Type: Report from Study
  Country: BR (occurrence: BR)
  Receive Date: 20240216
  Receipt Date: 20240809
  Transmission Date: 20241017
  Serious: Yes (Other)
  Sender: NOVARTIS
  Company Number: BR-002147023-NVSC2024BR030348

PATIENT
  Age: 52 Year
  Sex: Female

DRUGS (8)
  1. FEMARA [Suspect]
     Active Substance: LETROZOLE
     Indication: Breast cancer
     Dosage: UNK
     Route: 065
     Dates: start: 201802
  2. ZOMETA [Suspect]
     Active Substance: ZOLEDRONIC ACID
     Indication: Breast cancer
     Dosage: 4 MG ( EVERY 6 MONTHS)
     Route: 065
     Dates: start: 202001, end: 20220728
  3. ZOMETA [Suspect]
     Active Substance: ZOLEDRONIC ACID
     Dosage: 4 MG ( EVERY 6 MONTHS)
     Route: 065
     Dates: start: 202207
  4. ZOMETA [Suspect]
     Active Substance: ZOLEDRONIC ACID
     Dosage: 4 MG ( EVERY 6 MONTHS)
     Route: 065
     Dates: start: 202101
  5. ZOMETA [Suspect]
     Active Substance: ZOLEDRONIC ACID
     Dosage: 4 MG ( EVERY 6 MONTHS)
     Route: 065
     Dates: start: 202107
  6. ZOMETA [Suspect]
     Active Substance: ZOLEDRONIC ACID
     Dosage: 4 MG ( EVERY 6 MONTHS)
     Route: 065
     Dates: start: 202201, end: 20220728
  7. KISQALI [Suspect]
     Active Substance: RIBOCICLIB
     Indication: Breast cancer
     Dosage: 200 MG(OTHER/TAKE 3 TABLETS A DAY PER 21 DAYS)
     Route: 048
  8. FULVESTRANT [Suspect]
     Active Substance: FULVESTRANT
     Indication: Breast cancer
     Dosage: 500 MG
     Route: 030
     Dates: start: 20240107

REACTIONS (8)
  - Hepatic cancer recurrent [Unknown]
  - Breast cancer recurrent [Unknown]
  - Skin hypertrophy [Unknown]
  - Hepatic mass [Unknown]
  - Abdominal lymphadenopathy [Unknown]
  - Positron emission tomogram abnormal [Unknown]
  - Magnetic resonance imaging abnormal [Unknown]
  - Product prescribing error [Unknown]

NARRATIVE: CASE EVENT DATE: 20240123
